FAERS Safety Report 11491934 (Version 1)
Quarter: 2015Q3

REPORT INFORMATION
  Report Type: Spontaneous
  Country: CH (occurrence: ES)
  Receive Date: 20150910
  Receipt Date: 20150910
  Transmission Date: 20151125
  Serious: Yes (Hospitalization)
  Sender: FDA-Public Use
  Company Number: CH-LPDUSPRD-20150676

PATIENT
  Age: 75 Year
  Sex: Female

DRUGS (10)
  1. SERTRALINE [Concomitant]
     Active Substance: SERTRALINE HYDROCHLORIDE
     Dosage: 50 MG, MORNING
     Route: 065
  2. VENOFER [Suspect]
     Active Substance: IRON SUCROSE
     Dosage: 1 IN 1 WEEK
     Route: 042
     Dates: start: 20150316, end: 20150316
  3. EUTIROX [Concomitant]
     Active Substance: LEVOTHYROXINE SODIUM
     Dosage: 75 MCG, MORNING
     Route: 065
  4. FUROSEMIDE. [Concomitant]
     Active Substance: FUROSEMIDE
     Dosage: 0.5 DF MORNING
     Route: 065
  5. TRILEPTAL [Concomitant]
     Active Substance: OXCARBAZEPINE
     Dosage: 300 MG (0.5 DF MORNING, NIGHT)
     Route: 065
  6. PARACETAMOL [Concomitant]
     Active Substance: ACETAMINOPHEN
     Dosage: 3 GM (1 GM, TID)
     Route: 065
  7. ATORVASTATIN [Concomitant]
     Active Substance: ATORVASTATIN
     Dosage: 20 MG AT BEDTIME
     Route: 065
  8. ZYPREXA [Concomitant]
     Active Substance: OLANZAPINE
     Dosage: 0.5 DF AT BEDTIME
     Route: 065
  9. SINTROM [Concomitant]
     Active Substance: ACENOCOUMAROL
     Dosage: 3/4-1/2 ON ALTERNATE DAYS
     Route: 048
  10. MADOPAR [Concomitant]
     Active Substance: BENSERAZIDE HYDROCHLORIDE\LEVODOPA
     Dosage: 50 + 200 MG TID
     Route: 065

REACTIONS (10)
  - Administration site pain [Unknown]
  - Arthropathy [Unknown]
  - Extravasation [Unknown]
  - Compartment syndrome [Recovered/Resolved]
  - Phlebitis deep [Unknown]
  - Inflammation [Unknown]
  - Radial nerve palsy [Unknown]
  - Haematoma [Unknown]
  - Body temperature increased [Unknown]
  - Pain [Unknown]

NARRATIVE: CASE EVENT DATE: 20150316
